FAERS Safety Report 8852783 (Version 1)
Quarter: 2012Q4

REPORT INFORMATION
  Report Type: 
  Country: US (occurrence: US)
  Receive Date: 20121022
  Receipt Date: 20121022
  Transmission Date: 20130627
  Serious: No
  Sender: FDA-Public Use
  Company Number: US-B.I. PHARMACEUTICALS,INC./RIDGEFIELD-2012-BP-26040BP

PATIENT
  Sex: Female
  Weight: 82 kg

DRUGS (5)
  1. PRADAXA [Suspect]
     Indication: CEREBROVASCULAR ACCIDENT PROPHYLAXIS
     Dosage: 300 mg
     Route: 048
     Dates: start: 20120101
  2. METOPROLOL [Concomitant]
     Indication: HYPERTENSION
     Dosage: 150 mg
     Route: 048
  3. HYDROCHLOROTHIAZIDE [Concomitant]
     Indication: HYPERTENSION
     Dosage: 25 mg
     Route: 048
  4. ACCUPRIL [Concomitant]
     Indication: HYPERTENSION
     Dosage: 20 mg
     Route: 048
  5. SIMVASTATIN [Concomitant]
     Indication: PROPHYLAXIS
     Route: 048
     Dates: start: 20120101, end: 201209

REACTIONS (1)
  - Arthralgia [Recovered/Resolved]
